FAERS Safety Report 20476834 (Version 1)
Quarter: 2022Q1

REPORT INFORMATION
  Report Type: Spontaneous
  Country: US (occurrence: US)
  Receive Date: 20220215
  Receipt Date: 20220215
  Transmission Date: 20220423
  Serious: No
  Sender: FDA-Public Use
  Company Number: US-SANOFI-00967504

PATIENT
  Sex: Female

DRUGS (1)
  1. TOUJEO MAX [Suspect]
     Active Substance: INSULIN GLARGINE
     Indication: Type 2 diabetes mellitus
     Dosage: 24 IU, QD (DRUG STRUCTURE DOSAGE : 24 UNITS DRUG INTERVAL DOSAGE : EVERY NIGHT)
     Route: 065

REACTIONS (1)
  - Corrective lens user [Unknown]
